FAERS Safety Report 4623652-X (Version None)
Quarter: 2005Q1

REPORT INFORMATION
  Report Type: 
  Country: None (occurrence: None)
  Receive Date: 20050330
  Receipt Date: 20050314
  Transmission Date: 20050727
  Serious: Yes (Death, Hospitalization, Other)
  Sender: FDA-Public Use
  Company Number: TRP_0087_2005

PATIENT
  Age: 57 Year
  Sex: Male

DRUGS (7)
  1. RIBASPHERE [Suspect]
     Indication: HEPATITIS C
     Dates: start: 20041009
  2. PEG-INTRON [Suspect]
     Indication: HEPATITIS C
     Dates: start: 20041009
  3. ALDACTONE [Concomitant]
  4. LACTULOSE [Concomitant]
  5. LASIX [Concomitant]
  6. MULTI-VITAMINS [Concomitant]
  7. OXYCODONE HCL [Concomitant]

REACTIONS (4)
  - CONDITION AGGRAVATED [None]
  - DEHYDRATION [None]
  - DYSPNOEA [None]
  - HEPATIC FAILURE [None]
